FAERS Safety Report 5710127-X (Version None)
Quarter: 2008Q2

REPORT INFORMATION
  Report Type: 
  Country: None (occurrence: None)
  Receive Date: 20080418
  Receipt Date: 20071129
  Transmission Date: 20081010
  Serious: No
  Sender: FDA-Public Use
  Company Number: US-ASTRAZENECA-2007UW27321

PATIENT
  Age: 78 Year
  Sex: Male
  Weight: 79.4 kg

DRUGS (3)
  1. TOPROL-XL [Suspect]
     Indication: HEART RATE IRREGULAR
     Dosage: 3 DOSES
     Route: 048
  2. TOPROL-XL [Suspect]
     Indication: ATRIAL FIBRILLATION
     Dosage: 3 DOSES
     Route: 048
  3. COUMADIN [Concomitant]

REACTIONS (4)
  - ILL-DEFINED DISORDER [None]
  - INSOMNIA [None]
  - NERVOUSNESS [None]
  - TINNITUS [None]
